FAERS Safety Report 17410217 (Version 2)
Quarter: 2020Q1

REPORT INFORMATION
  Report Type: Spontaneous
  Country: CN (occurrence: CN)
  Receive Date: 20200212
  Receipt Date: 20200224
  Transmission Date: 20200409
  Serious: Yes (Other)
  Sender: FDA-Public Use
  Company Number: CN-009507513-2002CHN002011

PATIENT
  Age: 53 Year
  Sex: Male
  Weight: 52 kg

DRUGS (7)
  1. DEXTROSE. [Concomitant]
     Active Substance: DEXTROSE
     Dosage: 250 MILLILITER
     Dates: start: 20200124
  2. ASCORBIC ACID. [Concomitant]
     Active Substance: ASCORBIC ACID
     Indication: VITAMIN SUPPLEMENTATION
     Dosage: 2 GRAM, UNK
     Dates: start: 20200124, end: 20200129
  3. DEXTROSE. [Concomitant]
     Active Substance: DEXTROSE
     Indication: PNEUMONIA
     Dosage: 50 MILLILITER, Q12H
     Route: 042
     Dates: start: 20200123
  4. TIENAM [Suspect]
     Active Substance: CILASTATIN SODIUM\IMIPENEM
     Indication: PNEUMONIA
     Dosage: 1 GRAM, UNK
     Route: 041
     Dates: start: 20200123, end: 20200126
  5. SODIUM CHLORIDE. [Concomitant]
     Active Substance: SODIUM CHLORIDE
     Indication: PNEUMONIA
     Dosage: 100 MILLILITER, Q8H
     Route: 042
     Dates: start: 20200123
  6. SOLU-MEDROL [Concomitant]
     Active Substance: METHYLPREDNISOLONE SODIUM SUCCINATE
     Indication: PNEUMONIA
     Dosage: 40 MILLIGRAM, UNK
     Dates: start: 20200123, end: 20200129
  7. PYRIDOXINE [Concomitant]
     Active Substance: PYRIDOXINE
     Indication: VITAMIN SUPPLEMENTATION
     Dosage: 0.1 GRAM, QD
     Route: 042
     Dates: start: 20200124, end: 20200129

REACTIONS (3)
  - Rash [Recovered/Resolved]
  - Pruritus [Recovered/Resolved]
  - Erythema [Recovered/Resolved]

NARRATIVE: CASE EVENT DATE: 20200126
